FAERS Safety Report 5905244-5 (Version None)
Quarter: 2008Q4

REPORT INFORMATION
  Report Type: 
  Country: None (occurrence: None)
  Receive Date: 20081001
  Receipt Date: 20080924
  Transmission Date: 20090506
  Serious: Yes (Other)
  Sender: FDA-Public Use
  Company Number: BR-PFIZER INC-2008081482

PATIENT
  Sex: Female

DRUGS (5)
  1. EXUBERA [Suspect]
     Indication: DIABETES MELLITUS
     Dosage: DAILY DOSE:7MG
     Route: 048
     Dates: start: 20070301, end: 20080101
  2. STILNOX [Concomitant]
     Route: 048
  3. SINGULAIR ^DIECKMANN^ [Concomitant]
     Route: 048
  4. SIMVASTATIN [Concomitant]
     Route: 048
  5. ATLANSIL ^ROEMMERS^ [Concomitant]
     Route: 048

REACTIONS (4)
  - COUGH [None]
  - GLAUCOMA [None]
  - OSTEOPOROSIS [None]
  - THYROIDECTOMY [None]
